FAERS Safety Report 21027046 (Version 1)
Quarter: 2022Q2

REPORT INFORMATION
  Report Type: Spontaneous
  Country: JP (occurrence: JP)
  Receive Date: 20220630
  Receipt Date: 20220630
  Transmission Date: 20220721
  Serious: Yes (Other)
  Sender: FDA-Public Use
  Company Number: JP-PFIZER INC-202200898366

PATIENT
  Age: 1 Year

DRUGS (1)
  1. CORTRIL [Suspect]
     Active Substance: HYDROCORTISONE
     Dosage: 9 ML (AS REPORTED)

REACTIONS (4)
  - Adrenal insufficiency [Unknown]
  - C-reactive protein increased [Unknown]
  - Diarrhoea [Unknown]
  - Blood pressure decreased [Unknown]
